FAERS Safety Report 5915438-0 (Version None)
Quarter: 2008Q4

REPORT INFORMATION
  Report Type: 
  Country: None (occurrence: None)
  Receive Date: 20081010
  Receipt Date: 20080930
  Transmission Date: 20090506
  Serious: Yes (Hospitalization)
  Sender: FDA-Public Use
  Company Number: FR-ELI_LILLY_AND_COMPANY-FR200810000396

PATIENT
  Age: 80 Year
  Sex: Female

DRUGS (5)
  1. CYMBALTA [Suspect]
     Dosage: UNK, UNKNOWN
     Route: 048
     Dates: end: 20080924
  2. PLAVIX [Concomitant]
     Dosage: UNK, UNKNOWN
     Route: 065
  3. XANAX [Concomitant]
     Dosage: UNK, UNKNOWN
     Route: 048
  4. MEPRONIZINE [Concomitant]
     Dosage: UNK, UNKNOWN
     Route: 048
  5. PRAXILENE [Concomitant]
     Dosage: UNK, UNKNOWN
     Route: 048

REACTIONS (2)
  - HOSPITALISATION [None]
  - HYPOGLYCAEMIA [None]
